FAERS Safety Report 21346320 (Version 1)
Quarter: 2022Q3

REPORT INFORMATION
  Report Type: Spontaneous
  Country: NL (occurrence: NL)
  Receive Date: 20220917
  Receipt Date: 20220917
  Transmission Date: 20221027
  Serious: Yes (Other)
  Sender: FDA-Public Use
  Company Number: None

PATIENT
  Age: 84 Year
  Sex: Male
  Weight: 91 kg

DRUGS (7)
  1. FUROSEMIDE [Suspect]
     Active Substance: FUROSEMIDE
     Indication: Cardiac failure
     Dosage: 1DD40MG
     Dates: start: 20220704, end: 20220705
  2. PANTOPRAZOLE [Concomitant]
     Active Substance: PANTOPRAZOLE
     Dosage: STRENGTH- 20 MG
  3. ALENDRONATE SODIUM\CALCIUM CARBONATE\CHOLECALCIFEROL [Concomitant]
     Active Substance: ALENDRONATE SODIUM\CALCIUM CARBONATE\CHOLECALCIFEROL
     Dosage: TABLET + CHEWABLE TABLET
  4. PERINDOPRIL [Concomitant]
     Active Substance: PERINDOPRIL
     Dosage: STRENGTH-  8 MG
  5. PHENPROCOUMON [Concomitant]
     Active Substance: PHENPROCOUMON
     Dosage: STRENGTH- 3 MG
  6. PRAVASTATIN [Concomitant]
     Active Substance: PRAVASTATIN
     Dosage: STRENGTH- 40 MG
  7. ALLOPURINOL [Concomitant]
     Active Substance: ALLOPURINOL
     Dosage: STRENGTH- 300 MG

REACTIONS (1)
  - Pemphigoid [Not Recovered/Not Resolved]

NARRATIVE: CASE EVENT DATE: 20220705
